FAERS Safety Report 23764754 (Version 1)
Quarter: 2024Q2

REPORT INFORMATION
  Report Type: Spontaneous
  Country: JP (occurrence: JP)
  Receive Date: 20240420
  Receipt Date: 20240420
  Transmission Date: 20240716
  Serious: Yes (Other)
  Sender: FDA-Public Use
  Company Number: JP-ABBVIE-5684994

PATIENT
  Sex: Female

DRUGS (7)
  1. ALPHAGAN P [Suspect]
     Active Substance: BRIMONIDINE TARTRATE
     Indication: Glaucoma
     Dosage: 2 DROP
     Route: 047
     Dates: start: 20180214, end: 20230425
  2. ALPHAGAN P [Suspect]
     Active Substance: BRIMONIDINE TARTRATE
     Dosage: FIRST ADMIN DATE 2023?2 DROP
     Route: 047
     Dates: end: 202312
  3. CARTEOLOL HYDROCHLORIDE\LATANOPROST [Suspect]
     Active Substance: CARTEOLOL HYDROCHLORIDE\LATANOPROST
     Indication: Glaucoma
     Dosage: COMBINATION OPHTHALMIC SOLUTION
     Route: 047
     Dates: start: 20170719
  4. RIPASUDIL HYDROCHLORIDE DIHYDRATE [Concomitant]
     Active Substance: RIPASUDIL HYDROCHLORIDE DIHYDRATE
     Indication: Glaucoma
     Dates: start: 20231214
  5. RIPASUDIL HYDROCHLORIDE DIHYDRATE [Concomitant]
     Active Substance: RIPASUDIL HYDROCHLORIDE DIHYDRATE
     Indication: Glaucoma
     Dates: start: 20160629, end: 20230424
  6. AZOPT [Concomitant]
     Active Substance: BRINZOLAMIDE
     Indication: Glaucoma
     Dates: start: 20151125
  7. ALPHAGAN P [Suspect]
     Active Substance: BRIMONIDINE TARTRATE
     Indication: Glaucoma
     Route: 047
     Dates: start: 20230425, end: 20231213

REACTIONS (3)
  - Corneal opacity [Not Recovered/Not Resolved]
  - Corneal deposits [Unknown]
  - Corneal opacity [Recovered/Resolved]

NARRATIVE: CASE EVENT DATE: 20190101
